FAERS Safety Report 8058337-3 (Version None)
Quarter: 2012Q1

REPORT INFORMATION
  Report Type: 
  Country: None (occurrence: None)
  Receive Date: 20120120
  Receipt Date: 20120111
  Transmission Date: 20120608
  Serious: Yes (Hospitalization)
  Sender: FDA-Public Use
  Company Number: IT-JNJFOC-20120104919

PATIENT
  Sex: Male
  Weight: 69 kg

DRUGS (3)
  1. INFLIXIMAB, RECOMBINANT [Suspect]
     Indication: CROHN'S DISEASE
     Route: 042
     Dates: start: 20091013
  2. ANTIBIOTICS [Concomitant]
     Indication: CROHN'S DISEASE
  3. BUDESONIDE [Concomitant]

REACTIONS (1)
  - CROHN'S DISEASE [None]
